FAERS Safety Report 18218509 (Version 1)
Quarter: 2020Q3

REPORT INFORMATION
  Report Type: Spontaneous
  Country: FR (occurrence: FR)
  Receive Date: 20200901
  Receipt Date: 20200901
  Transmission Date: 20201103
  Serious: Yes (Death)
  Sender: FDA-Public Use
  Company Number: FR-PFIZER INC-2020334438

PATIENT
  Age: 73 Year
  Sex: Male
  Weight: 46 kg

DRUGS (7)
  1. PAROXETINE ARROW [Concomitant]
     Active Substance: PAROXETINE
     Dosage: 20 MG, 1X/DAY
     Route: 048
  2. HYDROCORTISONE UPJOHN [Concomitant]
     Active Substance: HYDROCORTISONE
     Dosage: UNK
     Route: 042
  3. METRONIDAZOLE B BRAUN [Concomitant]
     Active Substance: METRONIDAZOLE
     Dosage: 1500 MG, 1X/DAY
     Route: 042
     Dates: start: 20200728
  4. KARDEGIC [Concomitant]
     Active Substance: ASPIRIN DL-LYSINE
     Dosage: 1050 MG, 1X/DAY
     Route: 048
     Dates: end: 20200810
  5. PANTOPRAZOLE MYLAN [Concomitant]
     Active Substance: PANTOPRAZOLE SODIUM
     Dosage: 40 MG, 1X/DAY
     Route: 048
     Dates: start: 20200806
  6. TYGACIL [Suspect]
     Active Substance: TIGECYCLINE
     Indication: PNEUMONIA ASPIRATION
     Dosage: 200 MG, 1X/DAY
     Route: 042
     Dates: start: 20200804, end: 20200811
  7. GABAPENTINE ARROW [Concomitant]
     Active Substance: GABAPENTIN
     Dosage: 100 MG, 1X/DAY
     Route: 048

REACTIONS (3)
  - Disseminated intravascular coagulation [Fatal]
  - Off label use [Unknown]
  - Product use in unapproved indication [Unknown]

NARRATIVE: CASE EVENT DATE: 20200808
